FAERS Safety Report 9346635 (Version 1)
Quarter: 2013Q2

REPORT INFORMATION
  Report Type: Report from Study
  Country: CA (occurrence: CA)
  Receive Date: 20130613
  Receipt Date: 20130613
  Transmission Date: 20140414
  Serious: Yes (Other)
  Sender: FDA-Public Use
  Company Number: CA-JNJFOC-20130605082

PATIENT
  Age: 50 Year
  Sex: Male
  Weight: 95.8 kg

DRUGS (3)
  1. REMICADE [Suspect]
     Indication: CROHN^S DISEASE
     Route: 042
     Dates: start: 20100122
  2. COLESTID [Concomitant]
     Route: 065
  3. VITAMIN B12 [Concomitant]
     Route: 065

REACTIONS (1)
  - Head injury [Recovering/Resolving]
